FAERS Safety Report 5415600-X (Version None)
Quarter: 2007Q3

REPORT INFORMATION
  Report Type: 
  Country: None (occurrence: None)
  Receive Date: 20070815
  Receipt Date: 20070809
  Transmission Date: 20080115
  Serious: Yes (Life-Threatening, Hospitalization)
  Sender: FDA-Public Use
  Company Number: HQWYE500410AUG07

PATIENT
  Age: 24 Year
  Sex: Female

DRUGS (6)
  1. IBUPROFEN [Suspect]
     Dosage: UNKNOWN
     Route: 065
  2. SEROQUEL [Concomitant]
     Dosage: UNKNOWN
     Route: 065
  3. TYLENOL COLD [Suspect]
     Dosage: UNKNOWN
     Route: 065
  4. CLONAZEPAM [Concomitant]
     Dosage: UNKNOWN
     Route: 065
  5. ZYPREXA [Suspect]
     Route: 048
  6. WELLBUTRIN [Suspect]
     Dosage: UNKNOWN
     Route: 065

REACTIONS (6)
  - ACIDOSIS [None]
  - DEPRESSED LEVEL OF CONSCIOUSNESS [None]
  - GRAND MAL CONVULSION [None]
  - HYPERCAPNIA [None]
  - HYPOVENTILATION [None]
  - INTENTIONAL OVERDOSE [None]
